FAERS Safety Report 4288365-5 (Version None)
Quarter: 2004Q1

REPORT INFORMATION
  Report Type: 
  Country: None (occurrence: None)
  Receive Date: 20040209
  Receipt Date: 20030919
  Transmission Date: 20041129
  Serious: No
  Sender: FDA-Public Use
  Company Number: US-GLAXOSMITHKLINE-A0426592A

PATIENT
  Age: 39 Year
  Sex: Female

DRUGS (3)
  1. PAXIL [Suspect]
     Indication: DEPRESSION
     Dosage: 20MG PER DAY
     Route: 048
  2. ATIVAN [Concomitant]
     Indication: DEPRESSION
  3. ZANTAC [Concomitant]
     Dosage: 300MG PER DAY

REACTIONS (2)
  - DIZZINESS [None]
  - PAIN [None]
